FAERS Safety Report 9159329 (Version 1)
Quarter: 2013Q1

REPORT INFORMATION
  Report Type: Spontaneous
  Country: US (occurrence: US)
  Receive Date: 20130313
  Receipt Date: 20130313
  Transmission Date: 20140127
  Serious: No
  Sender: FDA-Public Use
  Company Number: US-MYLANLABS-2012S1011589

PATIENT
  Sex: Male
  Weight: 91.22 kg

DRUGS (1)
  1. DIGITEK [Suspect]
     Indication: PRODUCT USED FOR UNKNOWN INDICATION

REACTIONS (7)
  - Red blood cell count decreased [Unknown]
  - Haemoglobin decreased [Unknown]
  - Haematocrit decreased [Unknown]
  - Monocyte count increased [Unknown]
  - Prothrombin time prolonged [Unknown]
  - Red cell distribution width increased [Unknown]
  - Cardioactive drug level below therapeutic [Unknown]
